FAERS Safety Report 9184130 (Version 1)
Quarter: 2012Q4

REPORT INFORMATION
  Report Type: 
  Country: BE (occurrence: BE)
  Receive Date: 20121031
  Receipt Date: 20121031
  Transmission Date: 20130627
  Serious: Yes (Other)
  Sender: FDA-Public Use
  Company Number: PHHY2012BE097040

PATIENT
  Age: 55 Year
  Sex: Female

DRUGS (2)
  1. EXJADE [Suspect]
     Indication: THALASSAEMIA
     Dosage: 20 MEq/kg
     Route: 048
     Dates: start: 1997
  2. LASIX [Concomitant]
     Dosage: UNK UKN, UNK

REACTIONS (4)
  - Cardiac failure [Not Recovered/Not Resolved]
  - Iron overload [Not Recovered/Not Resolved]
  - Dyspnoea [Not Recovered/Not Resolved]
  - Ejection fraction decreased [Not Recovered/Not Resolved]
